FAERS Safety Report 8620675-0 (Version None)
Quarter: 2012Q3

REPORT INFORMATION
  Report Type: 
  Country: None (occurrence: None)
  Receive Date: 20120824
  Receipt Date: 20120815
  Transmission Date: 20120928
  Serious: Yes (Death)
  Sender: FDA-Public Use
  Company Number: AU-BAXTER-2012BAX014511

PATIENT
  Sex: Female

DRUGS (3)
  1. CLINOLEIC 20% SOY OIL AND OLIVE OIL EMULSION FOR INJECTION BAG [Suspect]
     Route: 051
     Dates: end: 20120814
  2. BAXTER 25% GLUCOSE 250MG_1L INJECTION BP BAG AHB0224 [Suspect]
     Route: 051
     Dates: end: 20120814
  3. SYNTHAMIN 17 AMINO ACID 10% WITH ELECTROLYTES AND GLUCOSE 50% 1000ML I [Suspect]
     Route: 051
     Dates: end: 20120814

REACTIONS (1)
  - PNEUMONIA [None]
